FAERS Safety Report 16810074 (Version 13)
Quarter: 2024Q3

REPORT INFORMATION
  Report Type: Spontaneous
  Country: US (occurrence: US)
  Receive Date: 20190916
  Receipt Date: 20240701
  Transmission Date: 20241017
  Serious: No
  Sender: PFIZER
  Company Number: US-PFIZER INC-2019393944

PATIENT
  Age: 79 Year
  Sex: Male
  Weight: 99.32 kg

DRUGS (8)
  1. BOSULIF [Suspect]
     Active Substance: BOSUTINIB MONOHYDRATE
     Indication: Chronic myeloid leukaemia
     Dosage: 300 MG (3 TABLETS OF 100 MG), 1X/DAY
     Route: 048
  2. ASPIRIN [Concomitant]
     Active Substance: ASPIRIN
     Dosage: 81 MG
  3. SYMBICORT [Concomitant]
     Active Substance: BUDESONIDE\FORMOTEROL FUMARATE DIHYDRATE
     Dosage: 2 DF, 2X/DAY(2 PUFFS)
  4. FENOFIBRATE [Concomitant]
     Active Substance: FENOFIBRATE
     Dosage: 160 MG, 1X/DAY
  5. INCRUSE ELLIPTA [Concomitant]
     Active Substance: UMECLIDINIUM BROMIDE
     Dosage: 1 DF, DAILY (1 PUFF DAILY)
  6. METOPROLOL [Concomitant]
     Active Substance: METOPROLOL
     Dosage: 12.5 MG, 2X/DAY
  7. LEVOTHYROXINE [Concomitant]
     Active Substance: LEVOTHYROXINE\LEVOTHYROXINE SODIUM
     Dosage: 25 UG, 1X/DAY(1 PILL)
  8. SIMVASTATIN [Concomitant]
     Active Substance: SIMVASTATIN
     Dosage: 40 MG, 1X/DAY(1 PILL AT BEDTIME)

REACTIONS (1)
  - Hypoacusis [Unknown]
